FAERS Safety Report 9311549 (Version 1)
Quarter: 2013Q2

REPORT INFORMATION
  Report Type: Spontaneous
  Country: CA (occurrence: CA)
  Receive Date: 20130528
  Receipt Date: 20130528
  Transmission Date: 20140414
  Serious: Yes (Other)
  Sender: FDA-Public Use
  Company Number: CA-BAXTER-2013BAX018343

PATIENT
  Age: 18 Year
  Sex: Female

DRUGS (2)
  1. TRAVASOL 10% [Suspect]
     Indication: NUTRITIONAL SUPPLEMENTATION
     Route: 042
     Dates: start: 20130513, end: 20130513
  2. INTRALIPID [Suspect]
     Indication: NUTRITIONAL SUPPLEMENTATION
     Route: 042
     Dates: start: 20130513, end: 20130513

REACTIONS (1)
  - Anaphylactic shock [Recovered/Resolved]
